FAERS Safety Report 9417091 (Version 1)
Quarter: 2013Q3

REPORT INFORMATION
  Report Type: Spontaneous
  Country: TR (occurrence: TR)
  Receive Date: 20130724
  Receipt Date: 20130724
  Transmission Date: 20140515
  Serious: Yes (Hospitalization, Other)
  Sender: FDA-Public Use
  Company Number: TR-PFIZER INC-2013211222

PATIENT
  Age: 28 Year
  Sex: Male

DRUGS (1)
  1. CHAMPIX [Suspect]
     Dosage: UNK
     Dates: start: 201302

REACTIONS (3)
  - Aggression [Unknown]
  - Affective disorder [Not Recovered/Not Resolved]
  - Stress [Unknown]
